FAERS Safety Report 7942232-1 (Version None)
Quarter: 2011Q4

REPORT INFORMATION
  Report Type: 
  Country: None (occurrence: None)
  Receive Date: 20111122
  Receipt Date: 20111111
  Transmission Date: 20120403
  Serious: Yes (Hospitalization)
  Sender: FDA-Public Use
  Company Number: 2011MA016558

PATIENT
  Age: 69 Year
  Sex: Female

DRUGS (7)
  1. CLOPIDOGREL [Suspect]
     Indication: ACUTE MYOCARDIAL INFARCTION
     Dosage: 75 MG;QD;PO
     Route: 048
     Dates: start: 20111020, end: 20111021
  2. SIMVASTATIN [Suspect]
     Dosage: 20 MG;QD;PO
     Route: 048
     Dates: start: 20111020, end: 20111021
  3. ASPIRIN [Concomitant]
  4. LEVOTHYROXINE SODIUM [Concomitant]
  5. PANTOPRAZOLE SODIUM [Suspect]
     Dosage: 40 MG;QD;PO
     Route: 048
     Dates: start: 20111020, end: 20111021
  6. RAMIPRIL [Suspect]
     Indication: HYPERTENSION
     Dosage: 2.5 MG;QD;PO
     Route: 048
     Dates: start: 20111020, end: 20111021
  7. ATENOLOL [Suspect]
     Dosage: 100 MG;QD;PO
     Route: 048
     Dates: start: 20111020, end: 20111021

REACTIONS (2)
  - PRODUCT SUBSTITUTION ISSUE [None]
  - RASH MACULO-PAPULAR [None]
